FAERS Safety Report 6307016-9 (Version None)
Quarter: 2009Q3

REPORT INFORMATION
  Report Type: 
  Country: None (occurrence: None)
  Receive Date: 20090812
  Receipt Date: 20090804
  Transmission Date: 20100115
  Serious: Yes (Hospitalization)
  Sender: FDA-Public Use
  Company Number: DK-B.I. PHARMACEUTICALS,INC./RIDGEFIELD-2009-SW-00178DB

PATIENT
  Sex: Male
  Weight: 98.9 kg

DRUGS (2)
  1. TELMISARTAN [Suspect]
  2. ALISKIREN VS PLACEBO [Suspect]
     Indication: CARDIOVASCULAR DISORDER
     Dosage: BLINDED, INFORMATION WITH HELD, BUT ACCORDING TO NARRATIVE DOSE REDUCED FROM 300 MG TO 150 MG AT 21A
     Dates: start: 20080222, end: 20080421

REACTIONS (7)
  - ANAEMIA [None]
  - BLOOD CREATININE INCREASED [None]
  - DISEASE PROGRESSION [None]
  - DYSPNOEA [None]
  - HYPERGLYCAEMIA [None]
  - PNEUMONIA [None]
  - RENAL FAILURE [None]
